FAERS Safety Report 8001851 (Version 2)
Quarter: 2013Q1

REPORT INFORMATION
  Report Type: Spontaneous
  Country: US (occurrence: US)
  Receive Date: 20110622
  Receipt Date: 20130115
  Transmission Date: 20140127
  Serious: Yes (Hospitalization, Other)
  Sender: FDA-Public Use
  Company Number: US-AMGEN-USASP2011029749

PATIENT
  Age: 68 Year
  Sex: Female

DRUGS (8)
  1. ENBREL [Suspect]
     Indication: PSORIATIC ARTHROPATHY
     Dosage: 25 MG, 2 TIMES/WK
     Dates: end: 201008
  2. ENBREL [Suspect]
     Dosage: 50 MG, QWK
  3. ESTRATEST HS [Concomitant]
     Dosage: UNK
  4. VICODIN [Concomitant]
     Dosage: UNK
  5. LISINOPRIL [Concomitant]
     Dosage: UNK
  6. METOPROLOL [Concomitant]
     Dosage: UNK
  7. LIPITOR [Concomitant]
     Dosage: UNK
  8. DIAZIDE                            /00007602/ [Concomitant]
     Dosage: UNK
     Dates: start: 201007

REACTIONS (5)
  - Syncope [Unknown]
  - Coronary artery bypass [Recovering/Resolving]
  - Fall [Unknown]
  - Lip injury [Unknown]
  - Drug ineffective [Recovered/Resolved]
